FAERS Safety Report 10257653 (Version 1)
Quarter: 2014Q2

REPORT INFORMATION
  Report Type: Spontaneous
  Country: TW (occurrence: TW)
  Receive Date: 20140625
  Receipt Date: 20140625
  Transmission Date: 20141212
  Serious: Yes (Other)
  Sender: FDA-Public Use
  Company Number: TW-SA-2014SA080951

PATIENT
  Sex: Male

DRUGS (1)
  1. CEREZYME [Suspect]
     Indication: GAUCHER^S DISEASE
     Dosage: DOSE:2800 UNIT(S)
     Route: 042

REACTIONS (1)
  - Gastroenteritis [Recovered/Resolved]
